FAERS Safety Report 5478201-3 (Version None)
Quarter: 2007Q4

REPORT INFORMATION
  Report Type: 
  Country: None (occurrence: None)
  Receive Date: 20071005
  Receipt Date: 20071001
  Transmission Date: 20080405
  Serious: Yes (Other)
  Sender: FDA-Public Use
  Company Number: JP-GENENTECH-248802

PATIENT
  Age: 55 Year
  Sex: Female

DRUGS (1)
  1. RITUXAN [Suspect]
     Indication: RENAL TRANSPLANT

REACTIONS (1)
  - CYTOMEGALOVIRUS INFECTION [None]
